FAERS Safety Report 5241935-X (Version None)
Quarter: 2007Q1

REPORT INFORMATION
  Report Type: 
  Country: None (occurrence: None)
  Receive Date: 20070220
  Receipt Date: 20070209
  Transmission Date: 20070707
  Serious: Yes (Other)
  Sender: FDA-Public Use
  Company Number: GB-PFIZER INC-2007011521

PATIENT
  Age: 55 Year
  Sex: Female

DRUGS (5)
  1. CHAMPIX [Suspect]
     Dates: start: 20070119, end: 20070208
  2. BENDROFLUAZIDE [Concomitant]
  3. CLONIDINE [Concomitant]
  4. METFORMIN HCL [Concomitant]
  5. SIMVASTATIN [Concomitant]

REACTIONS (2)
  - CHEST PAIN [None]
  - SURGERY [None]
